FAERS Safety Report 21924890 (Version 1)
Quarter: 2023Q1

REPORT INFORMATION
  Report Type: Spontaneous
  Country: US (occurrence: US)
  Receive Date: 20230130
  Receipt Date: 20230130
  Transmission Date: 20230417
  Serious: No
  Sender: FDA-Public Use
  Company Number: US-TAKEDA-2023TUS008297

PATIENT
  Age: 41 Year
  Sex: Male
  Weight: 82.08 kg

DRUGS (2)
  1. LIVTENCITY [Suspect]
     Active Substance: MARIBAVIR
     Indication: Cytomegalovirus infection
     Dosage: UNK
     Route: 065
  2. LIVTENCITY [Suspect]
     Active Substance: MARIBAVIR
     Indication: Post procedural infection

REACTIONS (2)
  - Off label use [Unknown]
  - No adverse event [Unknown]
